FAERS Safety Report 9713981 (Version 1)
Quarter: 2013Q4

REPORT INFORMATION
  Report Type: Spontaneous
  Country: US (occurrence: US)
  Receive Date: 20131126
  Receipt Date: 20131126
  Transmission Date: 20140711
  Serious: No
  Sender: FDA-Public Use
  Company Number: US-GILEAD-2008-0018393

PATIENT
  Sex: Female
  Weight: 62.6 kg

DRUGS (9)
  1. LETAIRIS [Suspect]
     Indication: PULMONARY ARTERIAL HYPERTENSION
     Route: 048
     Dates: start: 20080318
  2. COUMADIN [Concomitant]
     Route: 048
  3. TORSEMIDE [Concomitant]
     Route: 048
  4. METOPROLOL [Concomitant]
     Route: 048
  5. DILTIAZEM [Concomitant]
     Route: 048
  6. POTASSIUM CHLORIDE [Concomitant]
     Route: 048
  7. ALPHAGAN [Concomitant]
  8. TRUSOPT [Concomitant]
  9. LUMIGAN [Concomitant]

REACTIONS (2)
  - Haemorrhoids [Unknown]
  - Nasal congestion [Unknown]
